FAERS Safety Report 6796406-6 (Version None)
Quarter: 2010Q2

REPORT INFORMATION
  Report Type: 
  Country: None (occurrence: None)
  Receive Date: 20100625
  Receipt Date: 20100512
  Transmission Date: 20101027
  Serious: Yes (Life-Threatening, Hospitalization)
  Sender: FDA-Public Use
  Company Number: JP-JNJCH-2010008840

PATIENT
  Sex: Female

DRUGS (6)
  1. ZYRTEC [Suspect]
     Indication: URAEMIC PRURITUS
     Dosage: TEXT:10MG QD
     Route: 048
     Dates: start: 20100317, end: 20100401
  2. LITURSOL [Concomitant]
     Indication: DRUG USE FOR UNKNOWN INDICATION
     Dosage: TEXT:300 MG
     Route: 048
  3. ANTIDIARRHOEAL MICROORGANISMS [Concomitant]
     Indication: DRUG USE FOR UNKNOWN INDICATION
     Dosage: TEXT:3 DF
     Route: 048
  4. TAKEPRON [Concomitant]
     Indication: DRUG USE FOR UNKNOWN INDICATION
     Dosage: TEXT:15 MG
     Route: 048
  5. MECOBALAMIN [Concomitant]
     Indication: DRUG USE FOR UNKNOWN INDICATION
     Dosage: TEXT:1500 UG
     Route: 048
  6. TANKARU [Concomitant]
     Indication: DRUG USE FOR UNKNOWN INDICATION
     Dosage: TEXT:1500 MG
     Route: 048
     Dates: start: 20100310

REACTIONS (3)
  - DYSPNOEA [None]
  - MUSCULOSKELETAL STIFFNESS [None]
  - RESPIRATORY FAILURE [None]
